FAERS Safety Report 8472468-5 (Version None)
Quarter: 2012Q2

REPORT INFORMATION
  Report Type: 
  Country: None (occurrence: None)
  Receive Date: 20120627
  Receipt Date: 20111018
  Transmission Date: 20120825
  Serious: No
  Sender: FDA-Public Use
  Company Number: US-AMGEN-USASP2011054403

PATIENT
  Age: 92 Year
  Sex: Male
  Weight: 77.098 kg

DRUGS (1)
  1. PROCRIT [Suspect]
     Indication: ANAEMIA
     Dosage: 11000 IU, QMO
     Route: 058
     Dates: start: 20110801

REACTIONS (2)
  - HAEMOGLOBIN DECREASED [None]
  - INCREASED APPETITE [None]
